FAERS Safety Report 8312284-8 (Version None)
Quarter: 2012Q2

REPORT INFORMATION
  Report Type: 
  Country: None (occurrence: None)
  Receive Date: 20120425
  Receipt Date: 20120423
  Transmission Date: 20120825
  Serious: Yes (Hospitalization)
  Sender: FDA-Public Use
  Company Number: GB-ROCHE-1024055

PATIENT
  Age: 75 Year
  Sex: Male
  Weight: 74.5 kg

DRUGS (2)
  1. VEMURAFENIB [Suspect]
     Indication: METASTATIC MALIGNANT MELANOMA
     Dosage: DOSE TEMPORARILY INTERRUPTED.
     Route: 048
     Dates: end: 20111024
  2. VEMURAFENIB [Suspect]
     Dates: start: 20111031

REACTIONS (1)
  - OESOPHAGITIS [None]
